FAERS Safety Report 13509263 (Version 1)
Quarter: 2017Q2

REPORT INFORMATION
  Report Type: Spontaneous
  Country: BR (occurrence: BR)
  Receive Date: 20170503
  Receipt Date: 20170503
  Transmission Date: 20170830
  Serious: Yes (Other)
  Sender: FDA-Public Use
  Company Number: BR-PFIZER INC-2015345303

PATIENT
  Age: 46 Year
  Sex: Female
  Weight: 64 kg

DRUGS (2)
  1. DOSTINEX [Suspect]
     Active Substance: CABERGOLINE
     Indication: BLOOD PROLACTIN INCREASED
     Dosage: 1 TABLET OF 0.5 MG, WEEKLY (EVERY SATURDAY NIGHT)
     Route: 048
     Dates: start: 2012
  2. DOSTINEX [Suspect]
     Active Substance: CABERGOLINE
     Dosage: UNSPECIFIED DOSE, 3X/WEEK
     Route: 048

REACTIONS (4)
  - Drug use disorder [Unknown]
  - Drug ineffective [Unknown]
  - Blood prolactin abnormal [Unknown]
  - Pituitary tumour benign [Unknown]

NARRATIVE: CASE EVENT DATE: 2014
